FAERS Safety Report 17594392 (Version 1)
Quarter: 2020Q1

REPORT INFORMATION
  Report Type: Report from Study
  Country: US (occurrence: US)
  Receive Date: 20200327
  Receipt Date: 20200327
  Transmission Date: 20200409
  Serious: No
  Sender: FDA-Public Use
  Company Number: NVSC2020US084152

PATIENT

DRUGS (1)
  1. ENTRESTO [Suspect]
     Active Substance: SACUBITRIL\VALSARTAN
     Indication: PRODUCT USED FOR UNKNOWN INDICATION
     Dosage: 1 DF (12.13 MG), QD
     Route: 048

REACTIONS (4)
  - Underdose [Unknown]
  - Fatigue [Unknown]
  - Wrong technique in product usage process [Unknown]
  - Hypotension [Unknown]
